FAERS Safety Report 19857676 (Version 3)
Quarter: 2021Q4

REPORT INFORMATION
  Report Type: Spontaneous
  Country: US (occurrence: US)
  Receive Date: 20210921
  Receipt Date: 20211005
  Transmission Date: 20220303
  Serious: Yes (Death, Other)
  Sender: FDA-Public Use
  Company Number: US-BIOVITRUM-2021US8413

PATIENT
  Age: 11 Month
  Sex: Female
  Weight: 7 kg

DRUGS (3)
  1. SYNAGIS [Suspect]
     Active Substance: PALIVIZUMAB
     Indication: Atrial septal defect
     Dosage: 100MG/1ML VL LIQUID
     Route: 030
     Dates: start: 202109
  2. SYNAGIS [Suspect]
     Active Substance: PALIVIZUMAB
     Indication: Antiviral prophylaxis
  3. SYNAGIS [Suspect]
     Active Substance: PALIVIZUMAB
     Indication: Tracheo-oesophageal fistula

REACTIONS (2)
  - Death [Fatal]
  - Eye swelling [Unknown]

NARRATIVE: CASE EVENT DATE: 20210917
